FAERS Safety Report 8388303-X (Version None)
Quarter: 2012Q2

REPORT INFORMATION
  Report Type: 
  Country: None (occurrence: None)
  Receive Date: 20120525
  Receipt Date: 20120522
  Transmission Date: 20120825
  Serious: No
  Sender: FDA-Public Use
  Company Number: US-PFIZER INC-2012122465

PATIENT
  Sex: Female
  Weight: 52 kg

DRUGS (2)
  1. NEURONTIN [Suspect]
     Indication: NERVE INJURY
     Dosage: 300 MG, 4X/DAY
     Route: 048
     Dates: start: 20000101
  2. MEGESTROL [Concomitant]
     Indication: WEIGHT INCREASED
     Dosage: ONE TEASPOON EVERY OTHER DAY

REACTIONS (2)
  - DRUG EFFECT DECREASED [None]
  - DRUG INEFFECTIVE [None]
